FAERS Safety Report 7867914-1 (Version None)
Quarter: 2011Q4

REPORT INFORMATION
  Report Type: 
  Country: None (occurrence: None)
  Receive Date: 20111028
  Receipt Date: 20111018
  Transmission Date: 20120403
  Serious: Yes (Other)
  Sender: FDA-Public Use
  Company Number: PHHY2011AR92848

PATIENT
  Age: 47 Year
  Sex: Female

DRUGS (3)
  1. TAMOXIFEN CITRATE [Interacting]
     Indication: BREAST CANCER
     Dosage: 20 MG, UNK
  2. PAROXETINE HCL [Interacting]
     Dosage: 20 MG, QD
  3. CITALOPRAM HYDROBROMIDE [Suspect]
     Dosage: 20 MG, QD

REACTIONS (3)
  - MAJOR DEPRESSION [None]
  - HOT FLUSH [None]
  - DRUG INTERACTION [None]
